FAERS Safety Report 5339141-3 (Version None)
Quarter: 2007Q2

REPORT INFORMATION
  Report Type: 
  Country: None (occurrence: None)
  Receive Date: 20070530
  Receipt Date: 20070521
  Transmission Date: 20071010
  Serious: Yes (Hospitalization)
  Sender: FDA-Public Use
  Company Number: US-PFIZER INC-2007041084

PATIENT
  Sex: Male
  Weight: 95.3 kg

DRUGS (1)
  1. CELEBREX [Suspect]

REACTIONS (1)
  - ARTERIAL OCCLUSIVE DISEASE [None]
